FAERS Safety Report 7282519-1 (Version None)
Quarter: 2011Q1

REPORT INFORMATION
  Report Type: 
  Country: None (occurrence: None)
  Receive Date: 20110209
  Receipt Date: 20110128
  Transmission Date: 20110831
  Serious: Yes (Death, Hospitalization)
  Sender: FDA-Public Use
  Company Number: GB-JNJFOC-20110107963

PATIENT
  Age: 43 Year
  Sex: Female

DRUGS (2)
  1. PARACETAMOL [Suspect]
     Indication: PRODUCT USED FOR UNKNOWN INDICATION
     Dosage: }26 GRAMS
     Route: 048
  2. PARACETAMOL [Suspect]
     Route: 048

REACTIONS (7)
  - PROTHROMBIN TIME PROLONGED [None]
  - CEREBRAL INFARCTION [None]
  - HYPOTENSION [None]
  - CEREBRAL HAEMATOMA [None]
  - OVERDOSE [None]
  - METABOLIC ACIDOSIS [None]
  - ASPARTATE AMINOTRANSFERASE INCREASED [None]
